FAERS Safety Report 8265585 (Version 4)
Quarter: 2013Q2

REPORT INFORMATION
  Report Type: Report from Study
  Country: ES (occurrence: ES)
  Receive Date: 20111128
  Receipt Date: 20130410
  Transmission Date: 20140414
  Serious: Yes (Other)
  Sender: FDA-Public Use
  Company Number: ES-ROCHE-1014026

PATIENT
  Age: 70 Year
  Sex: Male
  Weight: 77 kg

DRUGS (3)
  1. RITUXIMAB [Suspect]
     Indication: CHRONIC LYMPHOCYTIC LEUKAEMIA
     Route: 042
     Dates: start: 20111114
  2. FLUDARABINE [Concomitant]
     Route: 042
     Dates: start: 20111114, end: 20111114
  3. CYCLOPHOSPHAMID [Concomitant]
     Route: 042
     Dates: start: 20111114, end: 20111114

REACTIONS (1)
  - Presyncope [Recovered/Resolved]
